FAERS Safety Report 4428691-X (Version None)
Quarter: 2004Q3

REPORT INFORMATION
  Report Type: 
  Country: None (occurrence: None)
  Receive Date: 20040818
  Receipt Date: 20031118
  Transmission Date: 20050211
  Serious: Yes (Life-Threatening)
  Sender: FDA-Public Use
  Company Number: US-BRISTOL-MYERS SQUIBB COMPANY-12440111

PATIENT
  Age: 82 Year
  Sex: Male
  Weight: 81 kg

DRUGS (10)
  1. TEQUIN [Suspect]
     Indication: URINARY TRACT INFECTION
     Route: 042
     Dates: start: 20020607, end: 20020609
  2. AMIODARONE HCL [Suspect]
     Indication: ATRIAL FIBRILLATION
     Route: 048
     Dates: start: 20020607, end: 20020609
  3. COREG [Concomitant]
     Dates: start: 20020608, end: 20020622
  4. ALTACE [Concomitant]
     Dates: start: 20020608, end: 20020609
  5. MAGNESIUM [Concomitant]
     Dates: start: 20020608, end: 20020628
  6. BUMEX [Concomitant]
     Route: 051
     Dates: start: 20020608, end: 20020628
  7. DOPAMINE HCL [Concomitant]
     Route: 051
     Dates: start: 20020607, end: 20020625
  8. ASPIRIN [Concomitant]
     Dates: start: 20020607, end: 20020628
  9. DIGOXIN [Concomitant]
     Dates: start: 20020607, end: 20020625
  10. PLAVIX [Concomitant]
     Dates: start: 20020607, end: 20020624

REACTIONS (2)
  - ELECTROCARDIOGRAM QT PROLONGED [None]
  - TORSADE DE POINTES [None]
